FAERS Safety Report 7256595-6 (Version None)
Quarter: 2011Q1

REPORT INFORMATION
  Report Type: 
  Country: None (occurrence: None)
  Receive Date: 20110129
  Receipt Date: 20100802
  Transmission Date: 20110831
  Serious: No
  Sender: FDA-Public Use
  Company Number: US-ABBOTT-10P-163-0654831-00

PATIENT
  Sex: Female
  Weight: 78.996 kg

DRUGS (2)
  1. HUMIRA [Suspect]
     Route: 058
     Dates: start: 20100618
  2. HUMIRA [Suspect]
     Indication: PRODUCT USED FOR UNKNOWN INDICATION
     Route: 058
     Dates: start: 20100301, end: 20100301

REACTIONS (5)
  - CHEST PAIN [None]
  - TOOTHACHE [None]
  - DYSPNOEA [None]
  - TOOTH FRACTURE [None]
  - GASTROINTESTINAL BACTERIAL INFECTION [None]
